FAERS Safety Report 11513297 (Version 1)
Quarter: 2015Q3

REPORT INFORMATION
  Report Type: Spontaneous
  Country: GB (occurrence: GB)
  Receive Date: 20150916
  Receipt Date: 20150916
  Transmission Date: 20151125
  Serious: Yes (Hospitalization)
  Sender: FDA-Public Use
  Company Number: GB-SUN PHARMACEUTICAL INDUSTRIES LTD-2015RR-102910

PATIENT

DRUGS (1)
  1. QUETIAPINE [Suspect]
     Active Substance: QUETIAPINE
     Indication: SCHIZOPHRENIA
     Dosage: STARTED 1 YEAR PRIOR TO ADMISSION
     Route: 065

REACTIONS (5)
  - Central obesity [Unknown]
  - Type 1 diabetes mellitus [Recovering/Resolving]
  - Hypertriglyceridaemia [Recovering/Resolving]
  - Hyperlipidaemia [Recovering/Resolving]
  - Metabolic syndrome [Recovering/Resolving]
